FAERS Safety Report 24667849 (Version 1)
Quarter: 2024Q4

REPORT INFORMATION
  Report Type: Spontaneous
  Country: DZ (occurrence: DZ)
  Receive Date: 20241127
  Receipt Date: 20241127
  Transmission Date: 20250114
  Serious: Yes (Other)
  Sender: SHENZHEN TECHDOW PHARMACEUTICAL
  Company Number: DZ-Techdow-2024Techdow000225

PATIENT
  Age: 67 Year
  Sex: Male

DRUGS (1)
  1. ENOXAPARIN SODIUM [Suspect]
     Active Substance: ENOXAPARIN SODIUM
     Indication: Anticoagulant therapy
     Dosage: 8000IU,BID

REACTIONS (2)
  - Compartment syndrome [Recovered/Resolved]
  - Vessel puncture site haematoma [Recovered/Resolved]
